FAERS Safety Report 6853180-2 (Version None)
Quarter: 2010Q3

REPORT INFORMATION
  Report Type: 
  Country: None (occurrence: None)
  Receive Date: 20100717
  Receipt Date: 20071204
  Transmission Date: 20110219
  Serious: No
  Sender: FDA-Public Use
  Company Number: US-PFIZER INC-2007103041

PATIENT
  Sex: Female
  Weight: 51.7 kg

DRUGS (12)
  1. CHANTIX [Suspect]
     Indication: SMOKING CESSATION THERAPY
     Dates: start: 20071115
  2. MESALAZINE [Concomitant]
     Indication: CROHN'S DISEASE
  3. PREDNISONE [Concomitant]
  4. ENTOCORT EC [Concomitant]
  5. ENALAPRIL MALEATE [Concomitant]
  6. LASIX [Concomitant]
  7. FOLIC ACID [Concomitant]
  8. ZOCOR [Concomitant]
  9. ZETIA [Concomitant]
  10. FIORICET [Concomitant]
  11. LUNESTA [Concomitant]
  12. HYDROCODONE [Concomitant]
     Indication: BACK PAIN

REACTIONS (2)
  - DIZZINESS [None]
  - NAUSEA [None]
